FAERS Safety Report 4944950-6 (Version None)
Quarter: 2006Q1

REPORT INFORMATION
  Report Type: 
  Country: None (occurrence: None)
  Receive Date: 20060117
  Receipt Date: 20041130
  Transmission Date: 20060701
  Serious: Yes (Other)
  Sender: FDA-Public Use
  Company Number: A03200404052

PATIENT
  Age: 87 Year
  Sex: Male
  Weight: 88.4514 kg

DRUGS (10)
  1. PLAVIX [Suspect]
     Indication: CEREBROVASCULAR ACCIDENT
     Dosage: 75 MG QD - ORAL
     Route: 048
     Dates: start: 20030101, end: 20041127
  2. PLAVIX [Suspect]
     Indication: MYOCARDIAL INFARCTION
     Dosage: 75 MG QD - ORAL
     Route: 048
     Dates: start: 20030101, end: 20041127
  3. DONEPEZIL HYDROCHLORIDE [Concomitant]
  4. PILOCARPINE HYDROCHLORIDE [Concomitant]
  5. TRAVOPROST [Concomitant]
  6. DORZOLAMIDE HYDROCHLORIDE [Concomitant]
  7. BRIMONIDINE TARTRATE [Concomitant]
  8. FOLIC ACID [Concomitant]
  9. TAMSULOSIN HYDROCHLORIDE [Concomitant]
  10. VITAMINS [Concomitant]

REACTIONS (5)
  - BALANCE DISORDER [None]
  - CHEST PAIN [None]
  - HYPERTENSION [None]
  - MENTAL IMPAIRMENT [None]
  - OEDEMA [None]
